FAERS Safety Report 21034078 (Version 1)
Quarter: 2022Q3

REPORT INFORMATION
  Report Type: Spontaneous
  Country: US (occurrence: None)
  Receive Date: 20220701
  Receipt Date: 20220701
  Transmission Date: 20221027
  Serious: Yes (Other)
  Sender: FDA-Public Use
  Company Number: None

PATIENT
  Age: 42 Year
  Sex: Female
  Weight: 126 kg

DRUGS (1)
  1. TAZAROTENE [Suspect]
     Active Substance: TAZAROTENE
     Indication: Psoriasis
     Dosage: FREQUENCY : DAILY;?
     Route: 061
     Dates: start: 20220628, end: 20220630

REACTIONS (14)
  - Skin exfoliation [None]
  - Skin exfoliation [None]
  - Skin discolouration [None]
  - Application site discolouration [None]
  - Disease recurrence [None]
  - Application site erythema [None]
  - Application site pain [None]
  - Application site inflammation [None]
  - Skin plaque [None]
  - Skin haemorrhage [None]
  - Pain [None]
  - Drug ineffective [None]
  - Skin fissures [None]
  - Insomnia [None]

NARRATIVE: CASE EVENT DATE: 20220701
